FAERS Safety Report 7787186-6 (Version None)
Quarter: 2011Q3

REPORT INFORMATION
  Report Type: 
  Country: None (occurrence: None)
  Receive Date: 20110929
  Receipt Date: 20110916
  Transmission Date: 20111222
  Serious: Yes (Other)
  Sender: FDA-Public Use
  Company Number: JP-SANOFI-AVENTIS-2011SA041860

PATIENT
  Age: 77 Year
  Sex: Female
  Weight: 42 kg

DRUGS (20)
  1. PLAVIX [Suspect]
     Route: 048
     Dates: start: 20090605, end: 20090605
  2. PLAVIX [Suspect]
     Route: 048
     Dates: start: 20090606
  3. CEFAZOLIN [Concomitant]
     Indication: INFECTION PROPHYLAXIS
     Dates: start: 20090618, end: 20090618
  4. SIGMART [Concomitant]
     Dosage: 2 MG/HR, CONTINUOUSLY
     Route: 041
     Dates: start: 20090605, end: 20090606
  5. ASPIRIN [Concomitant]
     Route: 048
     Dates: start: 20090605
  6. LANSOPRAZOLE [Concomitant]
     Indication: PROPHYLAXIS AGAINST GASTROINTESTINAL ULCER
     Route: 048
     Dates: start: 20090605
  7. CARVEDILOL [Concomitant]
     Route: 048
     Dates: start: 20090606, end: 20090611
  8. WARFARIN SODIUM [Concomitant]
     Route: 048
     Dates: start: 20090625, end: 20090702
  9. WARFARIN SODIUM [Concomitant]
     Route: 048
     Dates: start: 20090721
  10. WARFARIN SODIUM [Concomitant]
     Route: 048
     Dates: start: 20090703, end: 20090720
  11. HEPARIN [Concomitant]
     Route: 042
     Dates: start: 20090605, end: 20090605
  12. CARVEDILOL [Concomitant]
     Route: 048
     Dates: start: 20090612
  13. SIGMART [Concomitant]
     Route: 048
     Dates: start: 20090606
  14. LASIX [Concomitant]
     Route: 048
     Dates: start: 20090614, end: 20090618
  15. ALDACTONE [Concomitant]
     Route: 048
     Dates: start: 20090614, end: 20090618
  16. HEPARIN [Concomitant]
     Dosage: 300-500 IU/HR, CONTINUOUSLY
     Route: 041
     Dates: start: 20090605, end: 20090606
  17. LOSARTAN POTASSIUM [Concomitant]
     Route: 048
     Dates: start: 20090605
  18. NICORANDIL [Concomitant]
     Dosage: 2 MG/HR CONTINUOUS
     Dates: start: 20090618, end: 20090619
  19. CRESTOR [Concomitant]
     Indication: HYPERLIPIDAEMIA
     Route: 048
     Dates: start: 20090606
  20. HEPARIN [Concomitant]
     Dates: start: 20090618, end: 20090618

REACTIONS (1)
  - ANAEMIA [None]
